FAERS Safety Report 17857928 (Version 5)
Quarter: 2021Q4

REPORT INFORMATION
  Report Type: Report from Study
  Country: JP (occurrence: JP)
  Receive Date: 20200604
  Receipt Date: 20211129
  Transmission Date: 20220303
  Serious: Yes (Hospitalization)
  Sender: FDA-Public Use
  Company Number: JP-BEH-2020118131

PATIENT
  Age: 8 Month
  Sex: Male
  Weight: 9.8 kg

DRUGS (31)
  1. IDELVION [Suspect]
     Active Substance: COAGULATION FACTOR IX RECOMBINANT HUMAN
     Indication: Factor IX deficiency
     Dosage: 1000 INTERNATIONAL UNIT, QD
     Route: 042
     Dates: start: 20200109, end: 20200109
  2. IDELVION [Suspect]
     Active Substance: COAGULATION FACTOR IX RECOMBINANT HUMAN
     Indication: Factor IX deficiency
     Dosage: 1000 INTERNATIONAL UNIT, QD
     Route: 042
     Dates: start: 20200109, end: 20200109
  3. IDELVION [Suspect]
     Active Substance: COAGULATION FACTOR IX RECOMBINANT HUMAN
     Indication: Prophylaxis
     Dosage: 1000 INTERNATIONAL UNIT, QD
     Route: 042
     Dates: start: 20200112, end: 20200112
  4. IDELVION [Suspect]
     Active Substance: COAGULATION FACTOR IX RECOMBINANT HUMAN
     Indication: Prophylaxis
     Dosage: 1000 INTERNATIONAL UNIT, QD
     Route: 042
     Dates: start: 20200112, end: 20200112
  5. IDELVION [Suspect]
     Active Substance: COAGULATION FACTOR IX RECOMBINANT HUMAN
     Indication: Haemorrhage
     Dosage: 500 INTERNATIONAL UNIT, QW
     Route: 042
     Dates: start: 20200121, end: 20200428
  6. IDELVION [Suspect]
     Active Substance: COAGULATION FACTOR IX RECOMBINANT HUMAN
     Indication: Haemorrhage
     Dosage: 500 INTERNATIONAL UNIT, QW
     Route: 042
     Dates: start: 20200121, end: 20200428
  7. IDELVION [Suspect]
     Active Substance: COAGULATION FACTOR IX RECOMBINANT HUMAN
     Indication: Contusion
     Dosage: 500 INTERNATIONAL UNIT, QD
     Route: 042
     Dates: start: 20200503, end: 20200503
  8. IDELVION [Suspect]
     Active Substance: COAGULATION FACTOR IX RECOMBINANT HUMAN
     Indication: Contusion
     Dosage: 500 INTERNATIONAL UNIT, QD
     Route: 042
     Dates: start: 20200503, end: 20200503
  9. IDELVION [Suspect]
     Active Substance: COAGULATION FACTOR IX RECOMBINANT HUMAN
     Indication: Central venous catheter removal
     Dosage: 500 INTERNATIONAL UNIT, QD
     Route: 042
     Dates: start: 20200512, end: 20200513
  10. IDELVION [Suspect]
     Active Substance: COAGULATION FACTOR IX RECOMBINANT HUMAN
     Indication: Central venous catheter removal
     Dosage: 500 INTERNATIONAL UNIT, QD
     Route: 042
     Dates: start: 20200512, end: 20200513
  11. IDELVION [Suspect]
     Active Substance: COAGULATION FACTOR IX RECOMBINANT HUMAN
     Indication: Factor IX deficiency
     Dosage: 500 INTERNATIONAL UNIT, QD
     Route: 042
     Dates: start: 20200518, end: 20200518
  12. IDELVION [Suspect]
     Active Substance: COAGULATION FACTOR IX RECOMBINANT HUMAN
     Indication: Factor IX deficiency
     Dosage: 500 INTERNATIONAL UNIT, QD
     Route: 042
     Dates: start: 20200518, end: 20200518
  13. IDELVION [Suspect]
     Active Substance: COAGULATION FACTOR IX RECOMBINANT HUMAN
     Indication: Haemorrhage intracranial
     Dosage: 500 INTERNATIONAL UNIT, QD
     Route: 042
     Dates: start: 20200522, end: 20200522
  14. IDELVION [Suspect]
     Active Substance: COAGULATION FACTOR IX RECOMBINANT HUMAN
     Indication: Haemorrhage intracranial
     Dosage: 500 INTERNATIONAL UNIT, QD
     Route: 042
     Dates: start: 20200522, end: 20200522
  15. IDELVION [Suspect]
     Active Substance: COAGULATION FACTOR IX RECOMBINANT HUMAN
     Dosage: 500 INTERNATIONAL UNIT, QD
     Route: 042
     Dates: start: 20200529, end: 20200529
  16. IDELVION [Suspect]
     Active Substance: COAGULATION FACTOR IX RECOMBINANT HUMAN
     Dosage: 500 INTERNATIONAL UNIT, QD
     Route: 042
     Dates: start: 20200529, end: 20200529
  17. IDELVION [Suspect]
     Active Substance: COAGULATION FACTOR IX RECOMBINANT HUMAN
     Dosage: 500 INTERNATIONAL UNIT, QD
     Route: 042
     Dates: start: 20200607, end: 20200607
  18. IDELVION [Suspect]
     Active Substance: COAGULATION FACTOR IX RECOMBINANT HUMAN
     Dosage: 500 INTERNATIONAL UNIT, QD
     Route: 042
     Dates: start: 20200607, end: 20200607
  19. IDELVION [Suspect]
     Active Substance: COAGULATION FACTOR IX RECOMBINANT HUMAN
     Dosage: 500 INTERNATIONAL UNIT, QW
     Route: 042
     Dates: start: 20200616, end: 20200707
  20. IDELVION [Suspect]
     Active Substance: COAGULATION FACTOR IX RECOMBINANT HUMAN
     Dosage: 500 INTERNATIONAL UNIT, QW
     Route: 042
     Dates: start: 20200616, end: 20200707
  21. IDELVION [Suspect]
     Active Substance: COAGULATION FACTOR IX RECOMBINANT HUMAN
     Dosage: 1000 INTERNATIONAL UNIT, PRN
     Route: 042
     Dates: start: 20200109, end: 20200109
  22. IDELVION [Suspect]
     Active Substance: COAGULATION FACTOR IX RECOMBINANT HUMAN
     Dosage: 1000 INTERNATIONAL UNIT, PRN
     Route: 042
     Dates: start: 20200109, end: 20200109
  23. FUROSEMIDE [Concomitant]
     Active Substance: FUROSEMIDE
     Dosage: UNK
     Dates: end: 20200110
  24. KEPPRA [Concomitant]
     Active Substance: LEVETIRACETAM
     Dosage: UNK
     Dates: end: 20200114
  25. FOSPHENYTOIN SODIUM [Concomitant]
     Active Substance: FOSPHENYTOIN SODIUM
     Dosage: UNK
     Dates: start: 20200110, end: 20200113
  26. LEVETIRACETAM [Concomitant]
     Active Substance: LEVETIRACETAM
     Dosage: UNK
     Route: 048
     Dates: start: 20200114
  27. CEFAZOLIN SODIUM [Concomitant]
     Active Substance: CEFAZOLIN SODIUM
     Indication: Prophylaxis
     Dosage: UNK
     Dates: start: 20200513, end: 20200513
  28. CEFTRIAXONE [Concomitant]
     Active Substance: CEFTRIAXONE
     Indication: Staphylococcal infection
     Dosage: UNK
     Dates: start: 20200518, end: 20200520
  29. CEFTRIAXONE [Concomitant]
     Active Substance: CEFTRIAXONE
     Indication: Staphylococcal bacteraemia
  30. VANCOMYCIN [Concomitant]
     Active Substance: VANCOMYCIN
     Indication: Staphylococcal infection
     Dosage: UNK
     Dates: start: 20200518, end: 20200528
  31. VANCOMYCIN [Concomitant]
     Active Substance: VANCOMYCIN
     Indication: Staphylococcal bacteraemia

REACTIONS (4)
  - Jugular vein thrombosis [Recovered/Resolved]
  - Device related infection [Recovering/Resolving]
  - Staphylococcal infection [Recovering/Resolving]
  - Staphylococcal bacteraemia [Recovering/Resolving]

NARRATIVE: CASE EVENT DATE: 20200518
